FAERS Safety Report 9462159 (Version 1)
Quarter: 2013Q3

REPORT INFORMATION
  Report Type: Spontaneous
  Country: JP (occurrence: JP)
  Receive Date: 20130816
  Receipt Date: 20130816
  Transmission Date: 20140515
  Serious: Yes (Other)
  Sender: FDA-Public Use
  Company Number: PHHY2013JP057817

PATIENT
  Age: 73 Year
  Sex: Male

DRUGS (7)
  1. AFINITOR [Suspect]
     Indication: METASTATIC RENAL CELL CARCINOMA
     Dosage: 10 MG, DAILY
     Route: 048
     Dates: start: 20130222, end: 20130516
  2. DIOVAN [Concomitant]
     Dosage: 80 MG, UNK
     Route: 048
  3. FERROMIA [Concomitant]
     Dosage: 100 MG, UNK
     Route: 048
  4. MUCOSTA [Concomitant]
     Dosage: 200 MG, UNK
     Route: 048
  5. MIYA BM [Concomitant]
     Dosage: 60 MG, UNK
     Route: 048
  6. NESINA [Concomitant]
     Dosage: 25 MG, UNK
     Route: 048
  7. THYRADIN S [Concomitant]
     Dosage: 25 MG, UNK
     Route: 048

REACTIONS (6)
  - Lung disorder [Recovering/Resolving]
  - Dyspnoea exertional [Unknown]
  - Cough [Recovering/Resolving]
  - Productive cough [Unknown]
  - Haemoglobin decreased [Unknown]
  - Blood glucose increased [Unknown]
